FAERS Safety Report 25463115 (Version 2)
Quarter: 2025Q2

REPORT INFORMATION
  Report Type: Spontaneous
  Country: US (occurrence: US)
  Receive Date: 20250620
  Receipt Date: 20250625
  Transmission Date: 20250716
  Serious: No
  Sender: MYLAN
  Company Number: US-MYLANLABS-2025M1049228

PATIENT
  Sex: Male

DRUGS (4)
  1. FINGOLIMOD [Suspect]
     Active Substance: FINGOLIMOD
     Indication: Product used for unknown indication
  2. FINGOLIMOD [Suspect]
     Active Substance: FINGOLIMOD
     Route: 065
  3. FINGOLIMOD [Suspect]
     Active Substance: FINGOLIMOD
     Route: 065
  4. FINGOLIMOD [Suspect]
     Active Substance: FINGOLIMOD

REACTIONS (8)
  - Memory impairment [Unknown]
  - Mobility decreased [Unknown]
  - Dysarthria [Unknown]
  - Dysphemia [Unknown]
  - Gait disturbance [Unknown]
  - Rash [Unknown]
  - Therapeutic response decreased [Unknown]
  - Product substitution issue [Unknown]
